FAERS Safety Report 9407965 (Version 1)
Quarter: 2013Q3

REPORT INFORMATION
  Report Type: Spontaneous
  Country: US (occurrence: US)
  Receive Date: 20130718
  Receipt Date: 20130718
  Transmission Date: 20140515
  Serious: No
  Sender: FDA-Public Use
  Company Number: US-TEVA-417988USA

PATIENT
  Sex: Female

DRUGS (3)
  1. AZILECT [Suspect]
     Indication: PARKINSON^S DISEASE
  2. SEROQUEL [Concomitant]
     Indication: OBSESSIVE-COMPULSIVE DISORDER
  3. SINEMET [Concomitant]
     Indication: PARKINSON^S DISEASE

REACTIONS (1)
  - Obsessive-compulsive disorder [Unknown]
